FAERS Safety Report 5525793-1 (Version None)
Quarter: 2007Q4

REPORT INFORMATION
  Report Type: 
  Country: None (occurrence: None)
  Receive Date: 20071126
  Receipt Date: 20071114
  Transmission Date: 20080405
  Serious: Yes (Life-Threatening, Other)
  Sender: FDA-Public Use
  Company Number: GB-AVENTIS-200717933GDDC

PATIENT
  Sex: Female

DRUGS (4)
  1. TELFAST                            /01314201/ [Suspect]
     Indication: URTICARIA
     Route: 048
  2. PHENYTOIN [Suspect]
     Indication: EPILEPSY
  3. PHENOBARBITONE [Suspect]
     Indication: EPILEPSY
  4. CHLORPHENIRAMINE TAB [Concomitant]

REACTIONS (3)
  - CONVULSION [None]
  - DRUG INTERACTION [None]
  - EPILEPSY [None]
